FAERS Safety Report 26084107 (Version 1)
Quarter: 2025Q4

REPORT INFORMATION
  Report Type: Spontaneous
  Country: TW (occurrence: TW)
  Receive Date: 20251124
  Receipt Date: 20251124
  Transmission Date: 20260117
  Serious: Yes (Other)
  Sender: SUNOVION
  Company Number: TW-SMPA-2025SMP009755

PATIENT
  Age: 52 Year
  Sex: Male

DRUGS (3)
  1. LATUDA [Interacting]
     Active Substance: LURASIDONE HYDROCHLORIDE
     Indication: Bipolar disorder
     Dosage: UNK
     Route: 048
  2. LITHIUM [Concomitant]
     Active Substance: LITHIUM
     Dosage: UNK
  3. BENZODIAZEPINE [Concomitant]
     Active Substance: BENZODIAZEPINE
     Dosage: UNK

REACTIONS (6)
  - Neuroleptic malignant syndrome [Unknown]
  - Renal failure [Recovering/Resolving]
  - Drug interaction [Unknown]
  - Metabolic acidosis [Unknown]
  - Toxicity to various agents [Unknown]
  - Overdose [Unknown]
